FAERS Safety Report 5407758-3 (Version None)
Quarter: 2007Q3

REPORT INFORMATION
  Report Type: 
  Country: None (occurrence: None)
  Receive Date: 20070807
  Receipt Date: 20070723
  Transmission Date: 20080115
  Serious: Yes (Hospitalization, Other)
  Sender: FDA-Public Use
  Company Number: US-SHR-US-2007-027361

PATIENT
  Age: 64 Year
  Sex: Male

DRUGS (1)
  1. BETASERON [Suspect]
     Dosage: 8 MIU, EVERY 2D
     Route: 058
     Dates: start: 20060410, end: 20070523

REACTIONS (6)
  - ABASIA [None]
  - CHOLECYSTITIS INFECTIVE [None]
  - CLOSTRIDIAL INFECTION [None]
  - PNEUMONIA [None]
  - PULMONARY EMBOLISM [None]
  - URINARY TRACT INFECTION [None]
